FAERS Safety Report 5212940-4 (Version None)
Quarter: 2007Q1

REPORT INFORMATION
  Report Type: 
  Country: None (occurrence: None)
  Receive Date: 20070116
  Receipt Date: 20070105
  Transmission Date: 20070707
  Serious: Yes (Other)
  Sender: FDA-Public Use
  Company Number: 15460

PATIENT
  Age: 58 Year
  Sex: Male

DRUGS (3)
  1. FLUOROURACIL [Suspect]
  2. LEUCOVORIN CALCIUM [Suspect]
  3. OXALIPLATIN [Suspect]

REACTIONS (3)
  - AMNESIA [None]
  - NEUROTOXICITY [None]
  - TEMPERATURE INTOLERANCE [None]
